FAERS Safety Report 12171565 (Version 1)
Quarter: 2016Q1

REPORT INFORMATION
  Report Type: Spontaneous
  Country: US (occurrence: None)
  Receive Date: 20160310
  Receipt Date: 20160310
  Transmission Date: 20160526
  Serious: Yes (Hospitalization)
  Sender: FDA-Public Use
  Company Number: None

PATIENT
  Age: 73 Year
  Sex: Male
  Weight: 75.8 kg

DRUGS (15)
  1. SYNTHROID [Concomitant]
     Active Substance: LEVOTHYROXINE SODIUM
  2. BABY ASPIRIN [Concomitant]
     Active Substance: ASPIRIN
  3. FISH OIL [Concomitant]
     Active Substance: FISH OIL
  4. PRILOSEC [Concomitant]
     Active Substance: OMEPRAZOLE MAGNESIUM
  5. RITUXIMAB [Suspect]
     Active Substance: RITUXIMAB
     Dates: end: 20160218
  6. IRON SUPPLEMENT [Concomitant]
     Active Substance: IRON
  7. ONDANSETRON [Concomitant]
     Active Substance: ONDANSETRON
  8. VITAMIN C [Concomitant]
     Active Substance: ASCORBIC ACID
  9. CALCIUM + VITAMIN D [Concomitant]
     Active Substance: CALCIUM\VITAMIN D
  10. NEBIVOLOL. [Concomitant]
     Active Substance: NEBIVOLOL
  11. RED YEAST RICE [Concomitant]
     Active Substance: DIETARY SUPPLEMENT
  12. BENDAMUSTINE HYDROCHLORIDE [Suspect]
     Active Substance: BENDAMUSTINE HYDROCHLORIDE
     Dates: end: 20160219
  13. AMLODIPINE [Concomitant]
     Active Substance: AMLODIPINE BESYLATE
  14. MULTIVITAMIN [Concomitant]
     Active Substance: VITAMINS
  15. COQ10 [Concomitant]
     Active Substance: UBIDECARENONE

REACTIONS (3)
  - Systemic inflammatory response syndrome [None]
  - Troponin increased [None]
  - Pyrexia [None]

NARRATIVE: CASE EVENT DATE: 20160227
